FAERS Safety Report 20728397 (Version 1)
Quarter: 2022Q2

REPORT INFORMATION
  Report Type: Spontaneous
  Country: US (occurrence: US)
  Receive Date: 20220420
  Receipt Date: 20220420
  Transmission Date: 20220721
  Serious: Yes (Other)
  Sender: FDA-Public Use
  Company Number: US-CIPLA LTD.-2022US02467

PATIENT

DRUGS (7)
  1. LEVETIRACETAM [Suspect]
     Active Substance: LEVETIRACETAM
     Indication: Seizure
     Dosage: 600 MILLIGRAM, BID
     Route: 065
  2. LEVETIRACETAM [Suspect]
     Active Substance: LEVETIRACETAM
     Dosage: 2000 MILLIGRAM
     Route: 065
  3. LEVETIRACETAM [Suspect]
     Active Substance: LEVETIRACETAM
     Dosage: 950 MILLIGRAM, BID
     Route: 042
  4. LEVETIRACETAM [Suspect]
     Active Substance: LEVETIRACETAM
     Dosage: 600 MILLIGRAM, BID
     Route: 065
  5. CLOBAZAM [Concomitant]
     Active Substance: CLOBAZAM
     Indication: Seizure
     Dosage: 10 MILLIGRAM, QD
     Route: 065
  6. LORAZEPAM [Concomitant]
     Active Substance: LORAZEPAM
     Indication: Seizure
     Dosage: 9 MG
     Route: 065
  7. ACETAMINOPHEN [Concomitant]
     Active Substance: ACETAMINOPHEN
     Indication: Seizure
     Dosage: UNK
     Route: 042

REACTIONS (5)
  - Intentional self-injury [Recovering/Resolving]
  - Screaming [Recovering/Resolving]
  - Crying [Recovering/Resolving]
  - Head banging [Recovering/Resolving]
  - Aggression [Recovering/Resolving]
